FAERS Safety Report 9038860 (Version 3)
Quarter: 2013Q3

REPORT INFORMATION
  Report Type: Report from Study
  Country: CN (occurrence: CN)
  Receive Date: 20130129
  Receipt Date: 20130909
  Transmission Date: 20140515
  Serious: Yes (Other)
  Sender: FDA-Public Use
  Company Number: CN-009507513-1301CHN004743

PATIENT
  Age: 23 Year
  Sex: Male
  Weight: 48 kg

DRUGS (11)
  1. BLINDED ERTAPENEM SODIUM [Suspect]
     Dosage: UNK
     Dates: start: 20121231
  2. BLINDED PIPERACILLIN (+) TAZOBACTAM [Suspect]
     Dosage: UNK
     Dates: start: 20121231
  3. BLINDED PLACEBO [Suspect]
     Dosage: UNK
     Dates: start: 20121231
  4. BLINDED POST TRIAL THERAPY [Suspect]
     Dosage: UNK
     Dates: start: 20121231
  5. BLINDED PRE TRIAL THERAPY [Suspect]
     Dosage: UNK
     Dates: start: 20121231
  6. INSULIN ASPART [Concomitant]
     Indication: TYPE 2 DIABETES MELLITUS
     Dosage: UNK, TID
     Dates: start: 20121229
  7. INSULIN GLARGINE [Concomitant]
     Indication: TYPE 2 DIABETES MELLITUS
     Dosage: UNK UNK, QD
     Dates: start: 20121229
  8. MECOBALAMIN [Concomitant]
     Indication: DIABETIC NEUROPATHY
     Dosage: 1 MG, QD
     Route: 042
     Dates: start: 20121129
  9. CITICOLINE SODIUM [Concomitant]
     Indication: DIABETIC NEUROPATHY
     Dosage: 1000 MG, QD
     Route: 042
     Dates: start: 20121229
  10. MAGNESIUM ASPARTATE (+) POTASSIUM ASPARTATE [Concomitant]
     Indication: PROPHYLAXIS
     Dosage: 10 ML, ONCE A DAY
     Route: 042
     Dates: start: 20130101, end: 20130105
  11. INSULIN [Concomitant]
     Indication: TYPE 2 DIABETES MELLITUS
     Dosage: 20 IU, QD
     Route: 042
     Dates: start: 20121229, end: 20130102

REACTIONS (1)
  - Hepatic function abnormal [Recovering/Resolving]
